FAERS Safety Report 6026972-X (Version None)
Quarter: 2009Q1

REPORT INFORMATION
  Report Type: 
  Country: None (occurrence: None)
  Receive Date: 20090105
  Receipt Date: 20081229
  Transmission Date: 20090719
  Serious: Yes (Disabling, Other)
  Sender: FDA-Public Use
  Company Number: PHHY2008IT33564

PATIENT
  Age: 34 Year
  Sex: Male

DRUGS (2)
  1. DESFERAL [Suspect]
     Indication: IRON OVERLOAD
     Dosage: 2 G DAILY
     Route: 058
     Dates: start: 19770101, end: 20080110
  2. FOSAMAX [Concomitant]
     Dosage: 70 MG

REACTIONS (4)
  - BRONCHOALVEOLAR LAVAGE [None]
  - BRONCHOSCOPY [None]
  - DYSPNOEA [None]
  - EOSINOPHILIC PNEUMONIA [None]
